FAERS Safety Report 5370742-2 (Version None)
Quarter: 2007Q2

REPORT INFORMATION
  Report Type: 
  Country: None (occurrence: None)
  Receive Date: 20070626
  Receipt Date: 20070430
  Transmission Date: 20071010
  Serious: Yes (Other)
  Sender: FDA-Public Use
  Company Number: US-PURDUE-USA_2007_0027674

PATIENT
  Sex: Female

DRUGS (1)
  1. OXYCONTIN [Suspect]
     Indication: PAIN
     Dosage: 40 MG, SEE TEXT

REACTIONS (4)
  - DRUG DEPENDENCE [None]
  - JUDGEMENT IMPAIRED [None]
  - MALAISE [None]
  - SUICIDAL BEHAVIOUR [None]
